FAERS Safety Report 8765256 (Version 3)
Quarter: 2025Q3

REPORT INFORMATION
  Report Type: Spontaneous
  Country: EU (occurrence: EU)
  Receive Date: 20120903
  Receipt Date: 20250916
  Transmission Date: 20251021
  Serious: Yes (Death, Hospitalization, Other)
  Sender: ACCORD
  Company Number: EU-ACCORD-014602

PATIENT
  Age: 43 Year
  Sex: Female

DRUGS (3)
  1. MYCOPHENOLATE MOFETIL [Suspect]
     Active Substance: MYCOPHENOLATE MOFETIL
  2. PREDNISONE [Suspect]
     Active Substance: PREDNISONE
     Indication: Immunosuppression
  3. PREDNISONE [Suspect]
     Active Substance: PREDNISONE
     Indication: Immunosuppression
     Dosage: 20 MG, QD

REACTIONS (5)
  - Epstein-Barr virus associated lymphoproliferative disorder [Fatal]
  - Epstein-Barr virus infection [Fatal]
  - Herpes simplex [Unknown]
  - Pharyngitis [Unknown]
  - Central nervous system lymphoma [Not Recovered/Not Resolved]
